FAERS Safety Report 14732633 (Version 2)
Quarter: 2018Q2

REPORT INFORMATION
  Report Type: Spontaneous
  Country: US (occurrence: US)
  Receive Date: 20180409
  Receipt Date: 20180419
  Transmission Date: 20180711
  Serious: Yes (Other)
  Sender: FDA-Public Use
  Company Number: US-AMGEN-USASP2018045599

PATIENT
  Age: 46 Year
  Sex: Female
  Weight: 103.4 kg

DRUGS (6)
  1. ZANAFLEX [Concomitant]
     Active Substance: TIZANIDINE HYDROCHLORIDE
     Indication: RHEUMATOID ARTHRITIS
     Dosage: 4 MG, TID
     Dates: start: 20170315
  2. EC-NAPROSYN [Concomitant]
     Active Substance: NAPROXEN
     Indication: RHEUMATOID ARTHRITIS
     Dosage: 500 MG, BID
     Dates: start: 20171221
  3. ENBREL [Suspect]
     Active Substance: ETANERCEPT
     Indication: PSORIASIS
  4. ENBREL [Suspect]
     Active Substance: ETANERCEPT
     Indication: RHEUMATOID ARTHRITIS
     Dosage: 50 MG, QWK
     Route: 058
     Dates: start: 20180324, end: 20180331
  5. ZOCOR [Concomitant]
     Active Substance: SIMVASTATIN
     Dosage: 20 MG, QD
     Dates: start: 20170202
  6. ENBREL [Suspect]
     Active Substance: ETANERCEPT
     Indication: PSORIATIC ARTHROPATHY

REACTIONS (8)
  - Eyelid oedema [Unknown]
  - Feeling hot [Unknown]
  - Injection site bruising [Recovering/Resolving]
  - Erythema [Unknown]
  - Injection site rash [Recovering/Resolving]
  - Injection site swelling [Recovering/Resolving]
  - Eye disorder [Unknown]
  - Contusion [Unknown]

NARRATIVE: CASE EVENT DATE: 2018
